FAERS Safety Report 8003828 (Version 2)
Quarter: 2013Q2

REPORT INFORMATION
  Report Type: Spontaneous
  Country: US (occurrence: None)
  Receive Date: 20110524
  Receipt Date: 20120621
  Transmission Date: 20140414
  Serious: Yes (Other)
  Sender: FDA-Public Use
  Company Number: 029299

PATIENT
  Age: 33 Year
  Sex: Female
  Weight: 70.8 kg

DRUGS (5)
  1. CIMZIA [Suspect]
     Indication: CROHN^S DISEASE
     Dosage: 1X/4 WEEKS
     Route: 058
     Dates: start: 20100901
  2. PRILOSEC [Concomitant]
  3. SYNTHROID [Concomitant]
  4. IRON [Concomitant]
  5. LISINOPRIL [Concomitant]

REACTIONS (3)
  - GASTROINTESTINAL INFLAMMATION [None]
  - SOMNOLENCE [None]
  - BLOOD IRON DECREASED [None]
